FAERS Safety Report 8347405-4 (Version None)
Quarter: 2012Q2

REPORT INFORMATION
  Report Type: 
  Country: None (occurrence: None)
  Receive Date: 20120509
  Receipt Date: 20120501
  Transmission Date: 20120825
  Serious: Yes (Death, Hospitalization)
  Sender: FDA-Public Use
  Company Number: US-ROCHE-1066942

PATIENT
  Age: 58 Year
  Sex: Female
  Weight: 69.8 kg

DRUGS (4)
  1. DIFLUCAN [Concomitant]
  2. PACLITAXEL [Suspect]
     Indication: ENDOMETRIAL CANCER
     Dosage: OVER 3 HRS ON DAY 1X6 CYCLES. LAST DOSE PRIOR TO SAE 06/APR/2012. TOTAL DOSE ADMINISTERED COURSE 244
     Route: 042
     Dates: start: 20111220
  3. AVASTIN [Suspect]
     Indication: ENDOMETRIAL CANCER
     Dosage: OVER 30-90 MINS ON DAY 1X6 CYCLES (STARTING CYCLE 2 IF POST SURGERY). LAST DOSE PRIOR TO SAE 06/APR/
     Route: 042
     Dates: start: 20111220
  4. CARBOPLATIN [Suspect]
     Indication: ENDOMETRIAL CANCER
     Dosage: AUC=6 OVER 30MINS ON DAY 1X6 CYCLES. LAST DOSE PRIOR TO SAE 06/APR/2012.TOTAL DOSE ADMINISTERED COUR
     Route: 042
     Dates: start: 20111220

REACTIONS (1)
  - SEPSIS [None]
